FAERS Safety Report 9458867 (Version 2)
Quarter: 2013Q3

REPORT INFORMATION
  Report Type: Spontaneous
  Country: US (occurrence: US)
  Receive Date: 20130814
  Receipt Date: 20130820
  Transmission Date: 20140515
  Serious: Yes (Other)
  Sender: FDA-Public Use
  Company Number: US-GLAXOSMITHKLINE-A1036817A

PATIENT
  Age: 30 Year
  Sex: Female

DRUGS (3)
  1. ADVAIR [Suspect]
     Indication: CHRONIC OBSTRUCTIVE PULMONARY DISEASE
     Dosage: 1PUFF TWICE PER DAY
     Route: 055
  2. ALBUTEROL/IPRATROPIUM [Concomitant]
  3. BUDESONIDE [Concomitant]

REACTIONS (5)
  - Respiratory tract infection [Recovering/Resolving]
  - Sinusitis [Recovering/Resolving]
  - Palpitations [Unknown]
  - Overdose [Recovered/Resolved]
  - Insomnia [Unknown]
